FAERS Safety Report 11730400 (Version 1)
Quarter: 2015Q4

REPORT INFORMATION
  Report Type: Spontaneous
  Country: US (occurrence: US)
  Receive Date: 20151110
  Receipt Date: 20151110
  Transmission Date: 20160304
  Serious: No
  Sender: FDA-Public Use
  Company Number: US-ELI_LILLY_AND_COMPANY-US201201005110

PATIENT
  Sex: Female

DRUGS (2)
  1. FORTEO [Suspect]
     Active Substance: TERIPARATIDE
     Indication: OSTEOPOROSIS
     Dosage: 20 UG, QD
     Dates: start: 20120105, end: 20120119
  2. CALCIUM [Concomitant]
     Active Substance: CALCIUM

REACTIONS (8)
  - Arthralgia [Recovering/Resolving]
  - Insomnia [Recovered/Resolved]
  - Blood calcium increased [Unknown]
  - Osteoarthritis [Recovering/Resolving]
  - Headache [Recovered/Resolved]
  - Fatigue [Recovering/Resolving]
  - Constipation [Recovered/Resolved]
  - Depressed mood [Recovered/Resolved]
